FAERS Safety Report 8418539-0 (Version None)
Quarter: 2012Q2

REPORT INFORMATION
  Report Type: 
  Country: None (occurrence: None)
  Receive Date: 20120607
  Receipt Date: 20120528
  Transmission Date: 20120825
  Serious: Yes (Other)
  Sender: FDA-Public Use
  Company Number: RO-GENZYME-FABR-1002455

PATIENT
  Sex: Female
  Weight: 93 kg

DRUGS (2)
  1. FABRAZYME [Suspect]
     Indication: FABRY'S DISEASE
     Dosage: 0.38 MG/KG, Q2W
     Route: 042
     Dates: start: 20090901
  2. FABRAZYME [Suspect]
     Dosage: 1.0 MG/KG, Q2W
     Route: 042
     Dates: start: 20060101, end: 20090901

REACTIONS (3)
  - TINNITUS [None]
  - DIZZINESS [None]
  - DEAFNESS TRANSITORY [None]
